FAERS Safety Report 23697957 (Version 1)
Quarter: 2024Q2

REPORT INFORMATION
  Report Type: Spontaneous
  Country: CN (occurrence: CN)
  Receive Date: 20240402
  Receipt Date: 20240402
  Transmission Date: 20240716
  Serious: Yes (Other)
  Sender: FDA-Public Use
  Company Number: CN-002147023-NVSC2024CN069850

PATIENT

DRUGS (1)
  1. ENTRESTO [Suspect]
     Active Substance: SACUBITRIL\VALSARTAN
     Indication: Left ventricular failure
     Dosage: 50 MG, BID  (CONTINUED FOR 6 MONTHS)
     Route: 048

REACTIONS (1)
  - Angioedema [Recovering/Resolving]
